FAERS Safety Report 17333933 (Version 7)
Quarter: 2021Q4

REPORT INFORMATION
  Report Type: Spontaneous
  Country: JP (occurrence: JP)
  Receive Date: 20200128
  Receipt Date: 20211027
  Transmission Date: 20220303
  Serious: Yes (Hospitalization, Other)
  Sender: FDA-Public Use
  Company Number: JP-ONO-2020JP001820

PATIENT
  Age: 66 Year
  Sex: Female
  Weight: 66 kg

DRUGS (18)
  1. KYPROLIS [Suspect]
     Active Substance: CARFILZOMIB
     Indication: Plasma cell myeloma
     Dosage: UNK,  TWICE/WEEK(CONSECUTIVE DAYS)
     Route: 041
  2. KYPROLIS [Suspect]
     Active Substance: CARFILZOMIB
     Dosage: 35 MG, ADMINISTERED TWICE-WEEKLY FOR 2 CONSECUTIVE DAYS
     Route: 041
  3. KYPROLIS [Suspect]
     Active Substance: CARFILZOMIB
     Dosage: FREQUENCY: TWICE A WEEK (1ST DOSE, 35 MG; 2ND DOSE, 40 MG)
     Route: 041
  4. KYPROLIS [Suspect]
     Active Substance: CARFILZOMIB
     Dosage: 70 MG, QW
     Route: 041
  5. KYPROLIS [Suspect]
     Active Substance: CARFILZOMIB
     Dosage: 85 MG, QW
     Route: 041
  6. KYPROLIS [Suspect]
     Active Substance: CARFILZOMIB
     Dosage: 40 MG, Q84H
     Route: 041
  7. KYPROLIS [Suspect]
     Active Substance: CARFILZOMIB
     Dosage: 34 MG
     Route: 041
  8. KYPROLIS [Suspect]
     Active Substance: CARFILZOMIB
     Dosage: 45 MG
     Route: 041
  9. KYPROLIS [Suspect]
     Active Substance: CARFILZOMIB
     Dosage: 60 MG
     Route: 041
  10. DENOSUMAB [Suspect]
     Active Substance: DENOSUMAB
     Indication: Product used for unknown indication
     Dosage: UNK
     Route: 065
     Dates: end: 20200116
  11. DEXAMETHASONE [Suspect]
     Active Substance: DEXAMETHASONE
     Indication: Plasma cell myeloma
     Dosage: 20 MG
     Route: 048
  12. DEXAMETHASONE [Suspect]
     Active Substance: DEXAMETHASONE
     Dosage: UNK, QW
     Route: 048
  13. DARZALEX [Suspect]
     Active Substance: DARATUMUMAB
     Indication: Plasma cell myeloma
     Dosage: UNK
     Route: 065
  14. ZOMETA [Concomitant]
     Active Substance: ZOLEDRONIC ACID
     Dosage: UNK
     Route: 065
     Dates: end: 20200116
  15. LANSOPRAZOLE [Concomitant]
     Active Substance: LANSOPRAZOLE
     Dosage: UNK
     Route: 048
  16. REVLIMID [Concomitant]
     Active Substance: LENALIDOMIDE
     Indication: Plasma cell myeloma
     Dosage: 3 DF
     Route: 048
  17. REVLIMID [Concomitant]
     Active Substance: LENALIDOMIDE
     Dosage: 2 DF
     Route: 048
  18. REVLIMID [Concomitant]
     Active Substance: LENALIDOMIDE
     Dosage: 1 DF
     Route: 048

REACTIONS (21)
  - Atypical femur fracture [Unknown]
  - Physical deconditioning [Unknown]
  - Physical deconditioning [Unknown]
  - Cardiac discomfort [Unknown]
  - Erythema of eyelid [Unknown]
  - Muscle spasms [Recovering/Resolving]
  - Blood pressure increased [Unknown]
  - Hypoaesthesia [Unknown]
  - Headache [Unknown]
  - Hot flush [Unknown]
  - Feeling abnormal [Unknown]
  - Flushing [Unknown]
  - Pain in extremity [Unknown]
  - Hot flush [Unknown]
  - Headache [Unknown]
  - Dizziness [Unknown]
  - Hypoaesthesia [Recovering/Resolving]
  - Hypoaesthesia [Unknown]
  - Muscle spasms [Unknown]
  - Infusion related reaction [Unknown]
  - Therapeutic response decreased [Unknown]

NARRATIVE: CASE EVENT DATE: 20191201
